FAERS Safety Report 4920178-0 (Version None)
Quarter: 2006Q1

REPORT INFORMATION
  Report Type: 
  Country: None (occurrence: None)
  Receive Date: 20060217
  Receipt Date: 20060214
  Transmission Date: 20060701
  Serious: Yes (Hospitalization)
  Sender: FDA-Public Use
  Company Number: 20060004USST

PATIENT
  Age: 56 Year
  Sex: Female

DRUGS (15)
  1. NATULAN (PROCARBAZINE HYDROCHLORIDE) [Suspect]
     Indication: HODGKIN'S DISEASE
     Dosage: 4 DF, PO
     Route: 048
     Dates: start: 20051003, end: 20051008
  2. NATULAN (PROCARBAZINE HYDROCHLORIDE) [Suspect]
     Indication: HODGKIN'S DISEASE
     Dosage: 4 DF, PO
     Route: 048
     Dates: start: 20051017, end: 20051023
  3. ATARAX [Suspect]
     Dosage: 50 MG PO
     Route: 048
     Dates: start: 20051009, end: 20051013
  4. ATARAX [Suspect]
     Dosage: 50 MG PO
     Route: 048
     Dates: start: 20051024, end: 20051026
  5. ATARAX [Suspect]
     Dosage: 50 MG PO
     Route: 048
     Dates: start: 20051028, end: 20051031
  6. ONCOVIN [Suspect]
     Indication: HODGKIN'S DISEASE
     Dosage: IV
     Route: 042
     Dates: start: 20051003, end: 20051004
  7. CIPROFLOXACIN HCL [Suspect]
     Indication: HODGKIN'S DISEASE
     Dosage: 400 MG, IV
     Route: 042
     Dates: start: 20051009, end: 20051011
  8. ACETAMINOPHEN [Suspect]
     Dosage: 1 G TID,IV
     Route: 042
     Dates: start: 20051009, end: 20051012
  9. ACETAMINOPHEN [Suspect]
     Dosage: 1 G TID,IV
     Route: 042
     Dates: start: 20051017, end: 20051020
  10. ACETAMINOPHEN [Suspect]
     Dosage: 1 G TID,IV
     Route: 042
     Dates: start: 20051102, end: 20051103
  11. OMEPRAZOLE [Suspect]
     Dosage: 1 DF,IV
     Route: 042
     Dates: start: 20051009, end: 20051102
  12. LEVOFLOXACIN [Concomitant]
  13. AUGMENTIN '125' [Concomitant]
  14. FUROSEMIDE [Concomitant]
  15. POTASSIUM CHLORIDE [Concomitant]

REACTIONS (15)
  - ALVEOLITIS [None]
  - DERMATITIS BULLOUS [None]
  - ERYTHEMA [None]
  - HYPERSENSITIVITY [None]
  - INFLAMMATION [None]
  - INTERSTITIAL LUNG DISEASE [None]
  - LEUKOPENIA [None]
  - LICHENOID KERATOSIS [None]
  - LUNG DISORDER [None]
  - NORMOCHROMIC NORMOCYTIC ANAEMIA [None]
  - RASH PAPULAR [None]
  - RESPIRATORY FAILURE [None]
  - THERAPY NON-RESPONDER [None]
  - THROMBOCYTOPENIA [None]
  - TOXIC SKIN ERUPTION [None]
